FAERS Safety Report 7465113-9 (Version None)
Quarter: 2011Q2

REPORT INFORMATION
  Report Type: 
  Country: None (occurrence: None)
  Receive Date: 20110509
  Receipt Date: 20110426
  Transmission Date: 20111010
  Serious: Yes (Hospitalization)
  Sender: FDA-Public Use
  Company Number: SE-JNJFOC-20110411247

PATIENT
  Age: 35 Year
  Sex: Male

DRUGS (7)
  1. REMICADE [Suspect]
     Indication: COLITIS ULCERATIVE
     Route: 042
  2. COLIFOAM [Concomitant]
     Indication: COLITIS
     Route: 054
  3. BETAPRED [Concomitant]
     Indication: COLITIS
  4. IMUREL [Concomitant]
     Indication: COLITIS ULCERATIVE
  5. PREDNISOLONE [Concomitant]
     Indication: COLITIS
  6. PRED-CLYSMA [Concomitant]
     Indication: COLITIS
     Route: 054
  7. REMICADE [Suspect]
     Dosage: 4TH INFUSION
     Route: 042

REACTIONS (2)
  - DISSEMINATED TUBERCULOSIS [None]
  - TUBERCULOSIS [None]
